FAERS Safety Report 12911983 (Version 1)
Quarter: 2016Q4

REPORT INFORMATION
  Report Type: Spontaneous
  Country: JP (occurrence: JP)
  Receive Date: 20161104
  Receipt Date: 20161104
  Transmission Date: 20170207
  Serious: Yes (Hospitalization, Other)
  Sender: FDA-Public Use
  Company Number: JP-SCIEGEN PHARMACEUTICALS INC-2016SCILIT00521

PATIENT
  Age: 16 Year
  Sex: Female

DRUGS (2)
  1. CARBAMAZEPINE. [Suspect]
     Active Substance: CARBAMAZEPINE
     Indication: EPILEPSY
     Dosage: 50 MG, QD
     Route: 065
  2. LAMOTRIGINE TABLETS [Suspect]
     Active Substance: LAMOTRIGINE
     Indication: EPILEPSY
     Dosage: 50 MG, QD
     Route: 065

REACTIONS (5)
  - Drug interaction [Unknown]
  - Drug reaction with eosinophilia and systemic symptoms [Unknown]
  - Lymphocyte stimulation test positive [Unknown]
  - Disseminated intravascular coagulation [Unknown]
  - Blood pressure decreased [Unknown]
